FAERS Safety Report 9393858 (Version 1)
Quarter: 2013Q3

REPORT INFORMATION
  Report Type: Spontaneous
  Country: US (occurrence: US)
  Receive Date: 20130710
  Receipt Date: 20130710
  Transmission Date: 20140515
  Serious: Yes (Other)
  Sender: FDA-Public Use
  Company Number: US-PFIZER INC-2013202020

PATIENT
  Sex: Male

DRUGS (1)
  1. NEURONTIN [Suspect]
     Dosage: UNK
     Dates: start: 20130606, end: 20130628

REACTIONS (10)
  - Abnormal behaviour [Unknown]
  - Logorrhoea [Unknown]
  - Insomnia [Unknown]
  - Psychomotor hyperactivity [Unknown]
  - Mood altered [Unknown]
  - Dysarthria [Unknown]
  - Dysphemia [Unknown]
  - Tachyphrenia [Unknown]
  - Agitation [Unknown]
  - Weight decreased [Unknown]
